FAERS Safety Report 20736675 (Version 1)
Quarter: 2022Q2

REPORT INFORMATION
  Report Type: Spontaneous
  Country: US (occurrence: US)
  Receive Date: 20220421
  Receipt Date: 20220421
  Transmission Date: 20220721
  Serious: No
  Sender: FDA-Public Use
  Company Number: US-Kiniksa Pharmaceuticals Ltd.-2021KPU000531

PATIENT
  Age: 66 Year
  Sex: Male

DRUGS (2)
  1. ARCALYST [Suspect]
     Active Substance: RILONACEPT
     Indication: Pericarditis
     Route: 058
     Dates: start: 20210916
  2. HEPARIN [Concomitant]
     Active Substance: HEPARIN SODIUM
     Indication: Renal impairment
     Dosage: UNITS

REACTIONS (2)
  - Injection site erythema [None]
  - Injection site haemorrhage [None]

NARRATIVE: CASE EVENT DATE: 20210923
